FAERS Safety Report 8226859-8 (Version None)
Quarter: 2012Q1

REPORT INFORMATION
  Report Type: 
  Country: None (occurrence: None)
  Receive Date: 20120322
  Receipt Date: 20120312
  Transmission Date: 20120608
  Serious: Yes (Hospitalization)
  Sender: FDA-Public Use
  Company Number: US-BAYER-2012-009329

PATIENT
  Age: 15 Year
  Sex: Female
  Weight: 88.435 kg

DRUGS (2)
  1. YASMIN [Suspect]
     Dosage: UNK
     Route: 048
     Dates: start: 20031101, end: 20031201
  2. SPIRONOLACTONE [Concomitant]
     Dosage: 50 MG, UNK
     Route: 048
     Dates: start: 20031101, end: 20031201

REACTIONS (5)
  - PAIN [None]
  - DEEP VEIN THROMBOSIS [None]
  - EMOTIONAL DISTRESS [None]
  - INJURY [None]
  - INJECTION SITE DISCOLOURATION [None]
